FAERS Safety Report 10149620 (Version 1)
Quarter: 2014Q2

REPORT INFORMATION
  Report Type: Spontaneous
  Country: IT (occurrence: None)
  Receive Date: 20140430
  Receipt Date: 20140430
  Transmission Date: 20141212
  Serious: Yes (Hospitalization)
  Sender: FDA-Public Use
  Company Number: ANI_2014_1364918

PATIENT
  Age: 40 Year
  Sex: Male
  Weight: 109.77 kg

DRUGS (5)
  1. RISPERIDONE (NON-SPECIFIC) [Suspect]
     Indication: SUICIDE ATTEMPT
  2. PHENOBARBITAL (NON-SPECIFIC) [Suspect]
     Indication: SUICIDE ATTEMPT
  3. LORAZEPAM (NON-SPECIFIC) [Suspect]
     Indication: SUICIDE ATTEMPT
  4. CLOTIAZEPAM (NON-SPECIFIC) [Suspect]
     Indication: SUICIDE ATTEMPT
  5. BISOPROLOL (NON-SPECIFIC) [Suspect]
     Indication: SUICIDE ATTEMPT

REACTIONS (3)
  - Stress cardiomyopathy [None]
  - Coma [None]
  - Respiratory acidosis [None]
